FAERS Safety Report 21484526 (Version 1)
Quarter: 2022Q4

REPORT INFORMATION
  Report Type: Spontaneous
  Country: US (occurrence: US)
  Receive Date: 20221020
  Receipt Date: 20221020
  Transmission Date: 20230113
  Serious: Yes (Hospitalization)
  Sender: FDA-Public Use
  Company Number: US-ChurchDwight-2022-CDW-01543

PATIENT
  Age: 4 Month
  Sex: Male

DRUGS (1)
  1. ORAJEL TEETHING (HOMEOPATHIC) [Suspect]
     Active Substance: HOMEOPATHICS
     Indication: Product used for unknown indication
     Dosage: A PEA SIZED AMOUNT
     Route: 004
     Dates: start: 20221008, end: 20221008

REACTIONS (5)
  - Methaemoglobinaemia [Unknown]
  - Unresponsive to stimuli [Recovered/Resolved]
  - Dyspnoea [Recovered/Resolved]
  - Skin discolouration [Recovered/Resolved]
  - Product use issue [Unknown]

NARRATIVE: CASE EVENT DATE: 20221008
